FAERS Safety Report 11538700 (Version 1)
Quarter: 2015Q3

REPORT INFORMATION
  Report Type: Spontaneous
  Country: US (occurrence: None)
  Receive Date: 20150921
  Receipt Date: 20150921
  Transmission Date: 20151125
  Serious: Yes (Other)
  Sender: FDA-Public Use
  Company Number: None

PATIENT
  Age: 34 Year
  Sex: Male
  Weight: 86.18 kg

DRUGS (3)
  1. GARDEN OF LIFE MYKIND ORGANICS MEN^S MULTIVITAMIN [Concomitant]
  2. GARDEN OF LIFE RAW PROBIOTICS MEN [Concomitant]
  3. XYZAL [Suspect]
     Active Substance: LEVOCETIRIZINE DIHYDROCHLORIDE
     Indication: HYPERSENSITIVITY
     Route: 048
     Dates: start: 20150326, end: 20150730

REACTIONS (1)
  - Migraine with aura [None]

NARRATIVE: CASE EVENT DATE: 20150326
